FAERS Safety Report 17928268 (Version 4)
Quarter: 2020Q4

REPORT INFORMATION
  Report Type: Spontaneous
  Country: JP (occurrence: JP)
  Receive Date: 20200623
  Receipt Date: 20201007
  Transmission Date: 20210113
  Serious: Yes (Hospitalization, Disabling, Other)
  Sender: FDA-Public Use
  Company Number: JP-ASTELLAS-2020JP008810

PATIENT
  Age: 3 Year
  Sex: Male
  Weight: 24 kg

DRUGS (18)
  1. LACTIC ACID. [Concomitant]
     Active Substance: LACTIC ACID
     Indication: HYPOCALCAEMIA
     Route: 048
     Dates: start: 20150212
  2. FEBURIC [Concomitant]
     Active Substance: FEBUXOSTAT
     Indication: HYPERURICAEMIA
     Route: 048
     Dates: start: 20180815
  3. DENOSINE [GANCICLOVIR] [Concomitant]
     Active Substance: GANCICLOVIR
     Indication: CYTOMEGALOVIRUS INFECTION
     Dosage: UNK UNK, UNKNOWN FREQ.
     Route: 065
     Dates: start: 20180602
  4. PROGRAF [Suspect]
     Active Substance: TACROLIMUS
     Indication: PROPHYLAXIS AGAINST TRANSPLANT REJECTION
     Dosage: 0.9 MG, TWICE DAILY
     Route: 048
     Dates: start: 20090922
  5. CELLCEPT [Suspect]
     Active Substance: MYCOPHENOLATE MOFETIL\MYCOPHENOLATE MOFETIL HYDROCHLORIDE
     Indication: IMMUNOSUPPRESSANT DRUG THERAPY
     Route: 065
     Dates: start: 20120410
  6. ASPIRIN. [Concomitant]
     Active Substance: ASPIRIN
     Indication: ANTIPLATELET THERAPY
     Route: 048
     Dates: start: 20090919
  7. FERROUS CITRATE NA [Concomitant]
     Active Substance: SODIUM FERROUS CITRATE
     Indication: ANAEMIA
     Route: 048
     Dates: start: 20140804
  8. SODIUM RABEPRAZOLE [Concomitant]
     Active Substance: RABEPRAZOLE SODIUM
     Indication: GASTRITIS
     Route: 048
     Dates: start: 20180514
  9. PROGRAF [Suspect]
     Active Substance: TACROLIMUS
     Dosage: 0.7 MG, TWICE DAILY
     Route: 048
  10. PROGRAF [Suspect]
     Active Substance: TACROLIMUS
     Dosage: 2 MG, UNKNOWN FREQ.
     Route: 048
     Dates: start: 20180602
  11. PROGRAF [Suspect]
     Active Substance: TACROLIMUS
     Dosage: 3 MG, UNKNOWN FREQ.
     Route: 048
  12. PROGRAF [Suspect]
     Active Substance: TACROLIMUS
  13. CERTICAN [Suspect]
     Active Substance: EVEROLIMUS
     Dosage: 0.25 MG, TWICE DAILY
     Route: 065
     Dates: end: 20120410
  14. BIOFERMIN R [Concomitant]
     Active Substance: DIETARY SUPPLEMENT\PROBIOTICS
     Indication: DYSBIOSIS
     Dosage: 0.5 G, THRICE DAILY
     Route: 048
     Dates: start: 20150126
  15. KALIMATE [Concomitant]
     Active Substance: CALCIUM POLYSTYRENE SULFONATE
     Indication: HYPERKALAEMIA
     Route: 048
     Dates: start: 20150907
  16. PROGRAF [Suspect]
     Active Substance: TACROLIMUS
     Dosage: UNK UNK, UNKNOWN FREQ.
     Route: 048
  17. CERTICAN [Suspect]
     Active Substance: EVEROLIMUS
     Indication: IMMUNOSUPPRESSANT DRUG THERAPY
     Dosage: UNK UNK, UNKNOWN FREQ.
     Route: 065
  18. RENIVACE [Concomitant]
     Active Substance: ENALAPRIL
     Indication: CARDIAC FAILURE
     Dosage: 0.25 MG, TWICE DAILY
     Route: 048
     Dates: start: 20111212, end: 20160208

REACTIONS (8)
  - Polyomavirus-associated nephropathy [Recovering/Resolving]
  - Cardiac failure [Not Recovered/Not Resolved]
  - Rash [Recovered/Resolved]
  - Renal failure [Not Recovered/Not Resolved]
  - Cytomegalovirus infection [Recovering/Resolving]
  - Arteriosclerosis coronary artery [Recovering/Resolving]
  - Interstitial lung disease [Recovered/Resolved]
  - Gastritis [Not Recovered/Not Resolved]

NARRATIVE: CASE EVENT DATE: 20100209
